FAERS Safety Report 6016505-6 (Version None)
Quarter: 2008Q4

REPORT INFORMATION
  Report Type: 
  Country: None (occurrence: None)
  Receive Date: 20081222
  Receipt Date: 20081210
  Transmission Date: 20090506
  Serious: Yes (Hospitalization, Disabling, Other)
  Sender: FDA-Public Use
  Company Number: AU-ELI_LILLY_AND_COMPANY-AU200812003175

PATIENT
  Sex: Female

DRUGS (4)
  1. CYMBALTA [Suspect]
     Indication: FIBROMYALGIA
     Dosage: 30 MG ONCE
     Dates: start: 20080711
  2. CYMBALTA [Suspect]
     Dosage: UNK, UNKNOWN
     Route: 065
  3. PREGABALIN [Concomitant]
     Dosage: 300 MG, DAILY (1/D)
     Route: 065
     Dates: start: 20080711
  4. ENDEP [Concomitant]
     Dosage: UNK, UNKNOWN
     Route: 065
     Dates: end: 20080708

REACTIONS (10)
  - ABASIA [None]
  - AGITATION [None]
  - ASTHENIA [None]
  - CONVERSION DISORDER [None]
  - FALL [None]
  - GAIT DISTURBANCE [None]
  - MALAISE [None]
  - MUSCLE SPASMS [None]
  - PAIN [None]
  - TREMOR [None]
